FAERS Safety Report 18063335 (Version 1)
Quarter: 2020Q3

REPORT INFORMATION
  Report Type: Spontaneous
  Country: US (occurrence: US)
  Receive Date: 20200724
  Receipt Date: 20200724
  Transmission Date: 20201103
  Serious: No
  Sender: FDA-Public Use
  Company Number: US-AMGEN-USA-20200500137

PATIENT
  Age: 56 Year
  Sex: Female

DRUGS (2)
  1. OTEZLA [Suspect]
     Active Substance: APREMILAST
     Indication: PSORIASIS
     Dosage: 60 MILLIGRAM, BID
     Route: 048
     Dates: start: 201908
  2. OTEZLA [Suspect]
     Active Substance: APREMILAST
     Indication: PSORIATIC ARTHROPATHY

REACTIONS (3)
  - Abdominal discomfort [Unknown]
  - Headache [Unknown]
  - Arthralgia [Unknown]

NARRATIVE: CASE EVENT DATE: 20200430
